FAERS Safety Report 11692709 (Version 1)
Quarter: 2015Q4

REPORT INFORMATION
  Report Type: Spontaneous
  Country: US (occurrence: US)
  Receive Date: 20151103
  Receipt Date: 20151103
  Transmission Date: 20160304
  Serious: No
  Sender: FDA-Public Use
  Company Number: US-ENDO PHARMACEUTICALS INC.-FELO20150003

PATIENT
  Sex: Female

DRUGS (1)
  1. FELODIPINEEXTENDED-RELEASE TABLETS [Suspect]
     Active Substance: FELODIPINE
     Indication: PRODUCT USED FOR UNKNOWN INDICATION
     Route: 048

REACTIONS (3)
  - Product odour abnormal [Unknown]
  - Abdominal discomfort [Unknown]
  - Dysgeusia [Unknown]
